FAERS Safety Report 14565214 (Version 2)
Quarter: 2021Q2

REPORT INFORMATION
  Report Type: Spontaneous
  Country: ES (occurrence: ES)
  Receive Date: 20180223
  Receipt Date: 20210415
  Transmission Date: 20210716
  Serious: Yes (Hospitalization)
  Sender: FDA-Public Use
  Company Number: ES-AUROBINDO-AUR-APL-2018-009254

PATIENT
  Age: 72 Year
  Sex: Male

DRUGS (8)
  1. OMEPRAZOL [Concomitant]
     Active Substance: OMEPRAZOLE
     Indication: PRODUCT USED FOR UNKNOWN INDICATION
     Dosage: ()
     Route: 065
     Dates: start: 20171114
  2. ADIRO [Concomitant]
     Active Substance: ASPIRIN
     Indication: PRODUCT USED FOR UNKNOWN INDICATION
  3. ADIRO [Concomitant]
     Active Substance: ASPIRIN
     Indication: PRODUCT USED FOR UNKNOWN INDICATION
     Dosage: ()
     Route: 048
     Dates: start: 20100429
  4. EUTIROX [Concomitant]
     Active Substance: LEVOTHYROXINE SODIUM
     Indication: PRODUCT USED FOR UNKNOWN INDICATION
     Dosage: ()
     Route: 048
     Dates: start: 20160419
  5. AMLODIPINO [Concomitant]
     Active Substance: AMLODIPINE BESYLATE
     Indication: PRODUCT USED FOR UNKNOWN INDICATION
     Dosage: ()
     Route: 048
     Dates: start: 20160419
  6. METFORMIN [Suspect]
     Active Substance: METFORMIN HYDROCHLORIDE
     Indication: PRODUCT USED FOR UNKNOWN INDICATION
     Dosage: UNK
     Route: 065
     Dates: start: 20100429
  7. CANDESARTAN+HYDROCHLOROTHIAZIDE [Suspect]
     Active Substance: CANDESARTAN CILEXETIL\HYDROCHLOROTHIAZIDE
     Indication: PRODUCT USED FOR UNKNOWN INDICATION
     Dosage: CANDESARTAN/HCTZ 32/25MG CADA 24H ()
     Route: 048
     Dates: start: 20100429, end: 20171215
  8. PREVENCOR [Suspect]
     Active Substance: ATORVASTATIN CALCIUM
     Indication: PRODUCT USED FOR UNKNOWN INDICATION
     Dosage: ()
     Route: 065
     Dates: start: 20040602, end: 20171215

REACTIONS (1)
  - Pneumonitis [Recovered/Resolved]

NARRATIVE: CASE EVENT DATE: 201712
